FAERS Safety Report 9720257 (Version 1)
Quarter: 2013Q4

REPORT INFORMATION
  Report Type: Spontaneous
  Country: US (occurrence: US)
  Receive Date: 20131129
  Receipt Date: 20131129
  Transmission Date: 20140711
  Serious: No
  Sender: FDA-Public Use
  Company Number: US-009507513-1311USA012584

PATIENT
  Age: 60 Year
  Sex: Female

DRUGS (7)
  1. TEMODAR [Suspect]
     Indication: GLIOBLASTOMA
     Dosage: 75 MG/M2 MAINTENANCE PHASE DOSE
     Route: 048
     Dates: start: 20131007
  2. THERAPEUTIC RADIOPHARMACEUTICAL (UNSPECIFIED) [Concomitant]
  3. DEXAMETHASONE [Concomitant]
  4. KEPRA [Concomitant]
  5. AMBIEN [Concomitant]
  6. ZOFRAN [Concomitant]
  7. PRILOSEC [Concomitant]

REACTIONS (1)
  - Thrombocytopenia [Not Recovered/Not Resolved]
